FAERS Safety Report 7009626-2 (Version None)
Quarter: 2010Q3

REPORT INFORMATION
  Report Type: 
  Country: None (occurrence: None)
  Receive Date: 20100923
  Receipt Date: 20100914
  Transmission Date: 20110219
  Serious: Yes (Other)
  Sender: FDA-Public Use
  Company Number: PHHY2010JP47900

PATIENT
  Age: 71 Year
  Sex: Female

DRUGS (5)
  1. DIOVAN [Suspect]
     Indication: HYPERTENSION
     Dosage: 80MG DAILY
     Route: 048
     Dates: start: 20070517, end: 20100622
  2. RASILEZ (ALISKIREN) [Concomitant]
     Dosage: 150 MG, UNK
     Route: 048
     Dates: start: 20100622
  3. EPLERENONE [Concomitant]
     Dosage: 50MG, UNK
     Route: 048
  4. MEVALOTIN [Concomitant]
     Dosage: UNK
     Dates: start: 20070517, end: 20090722
  5. ZETIA [Concomitant]

REACTIONS (1)
  - BLOOD CREATINE PHOSPHOKINASE INCREASED [None]
